FAERS Safety Report 8769249 (Version 1)
Quarter: 2012Q4

REPORT INFORMATION
  Report Type: 
  Country: US (occurrence: US)
  Receive Date: 20120905
  Receipt Date: 20120905
  Transmission Date: 20130627
  Serious: No
  Sender: FDA-Public Use
  Company Number: US-009507513-1208USA009135

PATIENT

DRUGS (1)
  1. IMPLANON [Suspect]

REACTIONS (2)
  - Medical device complication [Unknown]
  - No adverse event [Unknown]
